FAERS Safety Report 4918940-3 (Version None)
Quarter: 2006Q1

REPORT INFORMATION
  Report Type: 
  Country: None (occurrence: None)
  Receive Date: 20060222
  Receipt Date: 20060206
  Transmission Date: 20060701
  Serious: Yes (Hospitalization)
  Sender: FDA-Public Use
  Company Number: S2006US01515

PATIENT
  Age: 71 Year
  Sex: Female

DRUGS (3)
  1. IMITREX [Suspect]
     Indication: MIGRAINE
     Dosage: 100MG AS REQUIRED
     Route: 048
  2. FOSAMAX [Concomitant]
  3. ZOMETA [Concomitant]
     Dates: start: 20060105

REACTIONS (9)
  - ABDOMINAL PAIN UPPER [None]
  - BACTERIAL INFECTION [None]
  - BODY TEMPERATURE DECREASED [None]
  - CELLULITIS [None]
  - DRUG INEFFECTIVE [None]
  - HEADACHE [None]
  - PYREXIA [None]
  - SEPSIS [None]
  - VOMITING [None]
